FAERS Safety Report 9133252 (Version 1)
Quarter: 2013Q1

REPORT INFORMATION
  Report Type: Spontaneous
  Country: IT (occurrence: IT)
  Receive Date: 20130301
  Receipt Date: 20130301
  Transmission Date: 20140127
  Serious: Yes (Life-Threatening)
  Sender: FDA-Public Use
  Company Number: IT-ASTRAZENECA-2013SE12757

PATIENT
  Age: 64 Year
  Sex: Male

DRUGS (8)
  1. ESOMEPRAZOLE [Suspect]
     Route: 048
     Dates: start: 20120419
  2. PLAVIX [Suspect]
     Route: 048
     Dates: start: 20120321
  3. GLIMEPIRIDE [Concomitant]
  4. SIMVASTATIN [Concomitant]
  5. CARDIOASPIRIN (ASA) [Concomitant]
  6. COMBISARTAN (VALSARTAN+HCTZ) [Concomitant]
     Dosage: 320 MG/ 12.5 MG
  7. EUTIROX (LEVOTHYROXINE) [Concomitant]
  8. METFONORM [Concomitant]

REACTIONS (3)
  - Cerebral infarction [Recovered/Resolved]
  - Cerebral thrombosis [Recovered/Resolved]
  - Subarachnoid haemorrhage [Recovered/Resolved]
